FAERS Safety Report 8822539 (Version 1)
Quarter: 2012Q4

REPORT INFORMATION
  Report Type: 
  Country: DE (occurrence: DE)
  Receive Date: 20121003
  Receipt Date: 20121003
  Transmission Date: 20130627
  Serious: Yes (Hospitalization)
  Sender: FDA-Public Use
  Company Number: DE-PFIZER INC-2012239044

PATIENT
  Age: 48 Year
  Sex: Male
  Weight: 102 kg

DRUGS (11)
  1. GENOTROPIN [Suspect]
     Dosage: 0.5 mg, 7/wk
     Route: 058
     Dates: start: 20020114
  2. PERGONAL [Concomitant]
     Dosage: UNK
     Dates: start: 20001001
  3. CALCIUM CARBONATE [Concomitant]
     Indication: OSTEOPOROSIS
     Dosage: UNK
     Dates: start: 20030701
  4. TESTOSTERONE [Concomitant]
     Indication: BLOOD LUTEINISING HORMONE DECREASED
     Dosage: UNK
     Dates: start: 19710301
  5. TESTOSTERONE [Concomitant]
     Indication: BLOOD FOLLICLE STIMULATING HORMONE DECREASED
  6. COLECALCIFEROL [Concomitant]
     Indication: VITAMIN D DEFICIENCY
     Dosage: UNK
     Dates: start: 20030701
  7. NEBIDO [Concomitant]
     Indication: BLOOD LUTEINISING HORMONE DECREASED
     Dosage: UNK
     Dates: start: 20060503
  8. NEBIDO [Concomitant]
     Indication: BLOOD FOLLICLE STIMULATING HORMONE DECREASED
  9. NEBIDO [Concomitant]
     Indication: HYPOGONADISM MALE
  10. HYDROCORTISON [Concomitant]
     Indication: ADRENAL INSUFFICIENCY
     Dosage: UNK
     Dates: start: 20081104
  11. LEVOTHYROXINE [Concomitant]
     Indication: BLOOD THYROID STIMULATING HORMONE DECREASED
     Dosage: UNK
     Dates: start: 19710301

REACTIONS (2)
  - Infection [Unknown]
  - Pyrexia [Unknown]
